FAERS Safety Report 25387942 (Version 3)
Quarter: 2025Q2

REPORT INFORMATION
  Report Type: Spontaneous
  Country: CN (occurrence: CN)
  Receive Date: 20250603
  Receipt Date: 20250618
  Transmission Date: 20250716
  Serious: Yes (Hospitalization, Other)
  Sender: SANOFI AVENTIS
  Company Number: CN-SA-2025SA155293

PATIENT
  Age: 76 Year
  Sex: Male

DRUGS (1)
  1. DUPIXENT [Suspect]
     Active Substance: DUPILUMAB
     Dates: start: 20250515

REACTIONS (17)
  - Pyrexia [Not Recovered/Not Resolved]
  - White blood cell count increased [Not Recovered/Not Resolved]
  - Neutrophil percentage increased [Unknown]
  - Lymphocyte percentage decreased [Unknown]
  - Neutrophil count increased [Unknown]
  - C-reactive protein increased [Unknown]
  - Lymphoma [Unknown]
  - Langerhans^ cell histiocytosis [Unknown]
  - Eosinophil count increased [Unknown]
  - Lymphadenopathy [Unknown]
  - Dermatitis atopic [Unknown]
  - Eczema [Unknown]
  - Hyperkeratosis [Unknown]
  - Parakeratosis [Unknown]
  - Lymphocytic infiltration [Unknown]
  - Eosinophilia [Unknown]
  - Rash [Unknown]

NARRATIVE: CASE EVENT DATE: 20250101
